FAERS Safety Report 12328841 (Version 1)
Quarter: 2016Q2

REPORT INFORMATION
  Report Type: Spontaneous
  Country: US (occurrence: US)
  Receive Date: 20160503
  Receipt Date: 20160503
  Transmission Date: 20160815
  Serious: Yes (Other)
  Sender: FDA-Public Use
  Company Number: US-BEH-2015051137

PATIENT
  Age: 63 Year
  Sex: Female

DRUGS (4)
  1. HYDROXYCHLOROQUINE [Concomitant]
     Active Substance: HYDROXYCHLOROQUINE
  2. NATURAL AND SEMISYNTHETIC ESTROGENS, PLAIN [Concomitant]
     Active Substance: ESTROGENS
  3. HIZENTRA [Suspect]
     Active Substance: HUMAN IMMUNOGLOBULIN G
     Indication: HUMORAL IMMUNE DEFECT
     Dosage: VIA MULTIPLE SITES
     Route: 058
  4. EFFEXOR [Concomitant]
     Active Substance: VENLAFAXINE HYDROCHLORIDE

REACTIONS (5)
  - Deep vein thrombosis [Unknown]
  - Erythema [Unknown]
  - Joint swelling [Unknown]
  - Peripheral swelling [Unknown]
  - Contusion [Unknown]

NARRATIVE: CASE EVENT DATE: 20150510
